FAERS Safety Report 18183211 (Version 5)
Quarter: 2024Q4

REPORT INFORMATION
  Report Type: Spontaneous
  Country: ES (occurrence: ES)
  Receive Date: 20200821
  Receipt Date: 20241126
  Transmission Date: 20250115
  Serious: Yes (Life-Threatening, Hospitalization, Other)
  Sender: GILEAD
  Company Number: ES-GILEAD-2020-0467618

PATIENT
  Age: 58 Year
  Sex: Male

DRUGS (4)
  1. YESCARTA [Suspect]
     Active Substance: AXICABTAGENE CILOLEUCEL
     Indication: Diffuse large B-cell lymphoma
     Dosage: 68 ML
     Route: 042
     Dates: start: 20200505, end: 20200505
  2. CYCLOPHOSPHAMIDE [Concomitant]
     Active Substance: CYCLOPHOSPHAMIDE
     Indication: Bone marrow conditioning regimen
     Dosage: UNK
     Dates: start: 20200430
  3. FLUDARABINE [Concomitant]
     Active Substance: FLUDARABINE PHOSPHATE
     Indication: Bone marrow conditioning regimen
     Dosage: UNK
     Dates: start: 20200430
  4. GEMCITABINE HYDROCHLORIDE\OXALIPLATIN\RITUXIMAB [Concomitant]
     Active Substance: GEMCITABINE HYDROCHLORIDE\OXALIPLATIN\RITUXIMAB
     Dosage: UNK
     Dates: start: 20200331, end: 20200430

REACTIONS (4)
  - Immune effector cell-associated neurotoxicity syndrome [Recovered/Resolved]
  - Depressed level of consciousness [Recovered/Resolved]
  - Mutism [Recovered/Resolved]
  - Cytokine release syndrome [Recovered/Resolved]

NARRATIVE: CASE EVENT DATE: 20200506
